FAERS Safety Report 16767115 (Version 2)
Quarter: 2019Q3

REPORT INFORMATION
  Report Type: Spontaneous
  Country: DE (occurrence: DE)
  Receive Date: 20190903
  Receipt Date: 20190910
  Transmission Date: 20191005
  Serious: Yes (Hospitalization, Other)
  Sender: FDA-Public Use
  Company Number: DE-MYLANLABS-2019M1081690

PATIENT
  Age: 41 Year
  Sex: Male

DRUGS (3)
  1. QUETIAPINE. [Suspect]
     Active Substance: QUETIAPINE
     Indication: DEPRESSION
     Dosage: 150 MILLIGRAM, QD
     Route: 065
  2. AMITRIPTYLINE HYDROCHLORIDE. [Suspect]
     Active Substance: AMITRIPTYLINE HYDROCHLORIDE
     Indication: DEPRESSION
     Dosage: 150 MILLIGRAM, QD
     Route: 065
  3. LITHIUM CARBONATE. [Suspect]
     Active Substance: LITHIUM CARBONATE
     Indication: DEPRESSION
     Dosage: 900 MILLIGRAM, QD
     Route: 065

REACTIONS (4)
  - Electrocardiogram abnormal [Recovered/Resolved]
  - Brugada syndrome [Recovered/Resolved]
  - Electrocardiogram ST segment elevation [Recovered/Resolved]
  - Bundle branch block right [Recovered/Resolved]
